FAERS Safety Report 9237442 (Version 2)
Quarter: 2013Q3

REPORT INFORMATION
  Report Type: Spontaneous
  Country: US (occurrence: US)
  Receive Date: 20130417
  Receipt Date: 20130905
  Transmission Date: 20140515
  Serious: No
  Sender: FDA-Public Use
  Company Number: PR-PFIZER INC-2013117307

PATIENT
  Age: 79 Year
  Sex: Male
  Weight: 74.83 kg

DRUGS (2)
  1. CELEBREX [Suspect]
     Indication: MUSCULOSKELETAL PAIN
     Dosage: ONCE DAILY
     Dates: start: 2008
  2. VICODIN [Concomitant]
     Indication: PAIN
     Dosage: UNK

REACTIONS (2)
  - Skin discolouration [Unknown]
  - Rash [Unknown]
